FAERS Safety Report 10265130 (Version 1)
Quarter: 2014Q2

REPORT INFORMATION
  Report Type: Spontaneous
  Country: IQ (occurrence: IQ)
  Receive Date: 20140627
  Receipt Date: 20140627
  Transmission Date: 20141212
  Serious: Yes (Other)
  Sender: FDA-Public Use
  Company Number: IQ-UCBSA-2014002991

PATIENT
  Age: 16 Year
  Sex: Female

DRUGS (5)
  1. KEPPRA [Suspect]
     Indication: EPILEPSY
     Dosage: 4500 MG DAILY
     Dates: start: 2014, end: 2014
  2. VALPROATE SODIUM [Concomitant]
     Dosage: DOSE UNKNOWN
  3. CLONAZEPAM [Concomitant]
     Dosage: UNKNOWN
  4. CARNITINE [Concomitant]
     Dosage: UNKNOWN
  5. FOLIC ACID [Concomitant]
     Dosage: UNKNOWN

REACTIONS (2)
  - Generalised oedema [Not Recovered/Not Resolved]
  - Overdose [Unknown]
